FAERS Safety Report 21706473 (Version 1)
Quarter: 2022Q4

REPORT INFORMATION
  Report Type: Report from Study
  Country: DK (occurrence: DK)
  Receive Date: 20221209
  Receipt Date: 20221209
  Transmission Date: 20230112
  Serious: Yes (Other)
  Sender: FDA-Public Use
  Company Number: DK-MYLANLABS-2022M1137564

PATIENT
  Sex: Male

DRUGS (4)
  1. TENOFOVIR DISOPROXIL [Suspect]
     Active Substance: TENOFOVIR DISOPROXIL
     Indication: Chronic hepatitis B
     Dosage: 245 MILLIGRAM, QD
     Route: 065
     Dates: start: 2011, end: 2014
  2. TENOFOVIR DISOPROXIL [Suspect]
     Active Substance: TENOFOVIR DISOPROXIL
     Dosage: UNK
     Route: 065
     Dates: start: 2017
  3. TENOFOVIR DISOPROXIL [Suspect]
     Active Substance: TENOFOVIR DISOPROXIL
     Dosage: TREATMENT WAS INTERRUPTED FROM MARCH TO JUNE 2020
     Route: 065
     Dates: end: 202006
  4. TENOFOVIR DISOPROXIL [Suspect]
     Active Substance: TENOFOVIR DISOPROXIL
     Dosage: RESTARTED THERAPY
     Route: 065

REACTIONS (1)
  - Drug resistance [Unknown]
